FAERS Safety Report 9348183 (Version 1)
Quarter: 2013Q2

REPORT INFORMATION
  Report Type: Spontaneous
  Country: US (occurrence: None)
  Receive Date: 20130612
  Receipt Date: 20130612
  Transmission Date: 20140414
  Serious: Yes (Hospitalization)
  Sender: FDA-Public Use
  Company Number: None

PATIENT
  Sex: Female

DRUGS (16)
  1. KYPROLIS [Suspect]
     Indication: PLASMA CELL MYELOMA
     Route: 042
     Dates: start: 20130417, end: 20130611
  2. COUMADIN [Concomitant]
  3. SYNTHROID [Concomitant]
  4. VALSARTAN [Concomitant]
  5. COREG [Concomitant]
  6. TESSALON PERLES [Concomitant]
  7. TRAZODONE [Concomitant]
  8. ALBUTEROL/IPRATROPIUM [Concomitant]
  9. PROTONIX [Concomitant]
  10. NORCO [Concomitant]
  11. PAXIL [Concomitant]
  12. ATIVAN [Concomitant]
  13. ZOFRAN [Concomitant]
  14. ACYCLOVIR [Concomitant]
  15. DEXAMETHASONE [Concomitant]
  16. RENVELA [Concomitant]

REACTIONS (1)
  - Epistaxis [None]
